FAERS Safety Report 13333071 (Version 2)
Quarter: 2017Q1

REPORT INFORMATION
  Report Type: Spontaneous
  Country: US (occurrence: US)
  Receive Date: 20170313
  Receipt Date: 20170328
  Transmission Date: 20170428
  Serious: Yes (Other)
  Sender: FDA-Public Use
  Company Number: US-MYLANLABS-2017M1015794

PATIENT

DRUGS (5)
  1. PROPRANOLOL [Interacting]
     Active Substance: PROPRANOLOL HYDROCHLORIDE
     Indication: HYPERTENSION
     Dosage: 30 MG, QD
  2. PROPRANOLOL [Interacting]
     Active Substance: PROPRANOLOL HYDROCHLORIDE
     Dosage: 20 MG, QD
  3. CLOZAPINE. [Interacting]
     Active Substance: CLOZAPINE
     Dosage: 700 MG, QD
  4. CLOZAPINE. [Suspect]
     Active Substance: CLOZAPINE
     Indication: SCHIZOAFFECTIVE DISORDER BIPOLAR TYPE
     Dosage: 600 MG, QD
  5. CLOZAPINE. [Interacting]
     Active Substance: CLOZAPINE
     Dosage: 600 MG, QD

REACTIONS (5)
  - Psychotic disorder [Unknown]
  - Liver function test abnormal [Unknown]
  - Drug interaction [Unknown]
  - Antipsychotic drug level increased [Not Recovered/Not Resolved]
  - Akathisia [Unknown]
